FAERS Safety Report 5266852-0 (Version None)
Quarter: 2007Q1

REPORT INFORMATION
  Report Type: 
  Country: None (occurrence: None)
  Receive Date: 20061213
  Receipt Date: 20020522
  Transmission Date: 20070707
  Serious: No
  Sender: FDA-Public Use
  Company Number: 2002UW07244

PATIENT
  Age: 72 Year
  Sex: Female
  Weight: 84.369 kg

DRUGS (9)
  1. NOLVADEX [Suspect]
     Indication: BREAST CANCER
     Dosage: 20 MG QD PO
     Route: 048
     Dates: start: 19971111
  2. CORZIDE [Concomitant]
  3. NORVASC [Concomitant]
  4. TYLENOL [Concomitant]
  5. ZOCOR [Concomitant]
  6. CENTRUM SILVER [Concomitant]
  7. PREVACID [Concomitant]
  8. PREDNISONE [Concomitant]
  9. ZANTAC [Concomitant]

REACTIONS (1)
  - CATARACT [None]
